FAERS Safety Report 6334458-8 (Version None)
Quarter: 2009Q3

REPORT INFORMATION
  Report Type: 
  Country: None (occurrence: None)
  Receive Date: 20090831
  Receipt Date: 20090820
  Transmission Date: 20100115
  Serious: Yes (Other)
  Sender: FDA-Public Use
  Company Number: US-JNJFOC-20090600207

PATIENT
  Sex: Female
  Weight: 63.5 kg

DRUGS (11)
  1. REMICADE [Suspect]
     Route: 042
  2. REMICADE [Suspect]
     Indication: RHEUMATOID ARTHRITIS
     Route: 042
  3. PLAQUENIL [Concomitant]
  4. METHYLPREDNISOLONE [Concomitant]
  5. METHOTREXATE [Concomitant]
     Dosage: 7 TABLETS ALL ON ONE DAY PER WEEK
  6. SUCRALFATE [Concomitant]
  7. CALTRATE [Concomitant]
  8. LIPITOR [Concomitant]
  9. ALLEGRA [Concomitant]
  10. TYLENOL (CAPLET) [Concomitant]
     Indication: PREMEDICATION
  11. ZYRTEC [Concomitant]
     Indication: PREMEDICATION

REACTIONS (15)
  - ASTHENIA [None]
  - COLD SWEAT [None]
  - DRUG INEFFECTIVE [None]
  - DYSPNOEA [None]
  - FATIGUE [None]
  - FEELING ABNORMAL [None]
  - FEELING HOT [None]
  - FLUSHING [None]
  - HEART RATE DECREASED [None]
  - HYPERHIDROSIS [None]
  - HYPOTENSION [None]
  - INFUSION RELATED REACTION [None]
  - NAUSEA [None]
  - PALLOR [None]
  - PULSE PRESSURE DECREASED [None]
